FAERS Safety Report 9974008 (Version 1)
Quarter: 2014Q1

REPORT INFORMATION
  Report Type: Report from Study
  Country: US (occurrence: US)
  Receive Date: 20140306
  Receipt Date: 20140306
  Transmission Date: 20141002
  Serious: No
  Sender: FDA-Public Use
  Company Number: US-ABBVIE-13P-163-1159485-00

PATIENT
  Age: 49 Year
  Sex: Male
  Weight: 80.81 kg

DRUGS (12)
  1. HUMIRA [Suspect]
     Indication: CROHN^S DISEASE
     Route: 058
     Dates: start: 20121130, end: 20121130
  2. HUMIRA [Suspect]
     Route: 058
     Dates: start: 20121214, end: 20121214
  3. HUMIRA [Suspect]
     Route: 058
     Dates: start: 20121228
  4. CYMBALTA [Concomitant]
     Indication: DEPRESSION
     Dates: start: 2012
  5. CYMBALTA [Concomitant]
     Indication: ABDOMINAL PAIN
  6. IMURAN [Concomitant]
     Indication: CROHN^S DISEASE
  7. METHOCARBAMOL [Concomitant]
     Indication: PRODUCT USED FOR UNKNOWN INDICATION
  8. TRAZADONE [Concomitant]
     Indication: INSOMNIA
  9. LOMOTIL [Concomitant]
     Indication: DIARRHOEA
  10. LOMOTIL [Concomitant]
     Indication: ABDOMINAL PAIN
  11. LORTAB [Concomitant]
     Indication: PAIN
  12. LORTAB [Concomitant]
     Indication: ABDOMINAL PAIN

REACTIONS (1)
  - Injection site bruising [Recovering/Resolving]
